FAERS Safety Report 25700317 (Version 3)
Quarter: 2025Q3

REPORT INFORMATION
  Report Type: Report from Study
  Country: US (occurrence: US)
  Receive Date: 20250819
  Receipt Date: 20250910
  Transmission Date: 20251021
  Serious: Yes (Other)
  Sender: MALLINCKRODT
  Company Number: US-MALLINCKRODT-MNK202504955

PATIENT
  Age: 56 Year
  Sex: Female

DRUGS (3)
  1. CORTICOTROPIN [Suspect]
     Active Substance: CORTICOTROPIN
     Indication: Multiple sclerosis
     Dosage: 80 UNITS
     Route: 058
     Dates: start: 20250808, end: 20250818
  2. INSULIN NOS [Concomitant]
     Active Substance: INSULIN NOS
  3. MOUNJARO [Concomitant]
     Active Substance: TIRZEPATIDE

REACTIONS (14)
  - Rib fracture [Unknown]
  - Fall [Unknown]
  - Blood glucose increased [Unknown]
  - Musculoskeletal stiffness [Unknown]
  - Bone pain [Recovered/Resolved]
  - Balance disorder [Unknown]
  - Mental fatigue [Unknown]
  - Disturbance in attention [Unknown]
  - Feeling abnormal [Unknown]
  - Injection site bruising [Not Recovered/Not Resolved]
  - Injection site pain [Unknown]
  - Injection site urticaria [Recovered/Resolved]
  - Injection site pruritus [Unknown]
  - Injection site discolouration [Unknown]

NARRATIVE: CASE EVENT DATE: 20250801
